FAERS Safety Report 8206838-7 (Version None)
Quarter: 2012Q1

REPORT INFORMATION
  Report Type: 
  Country: None (occurrence: None)
  Receive Date: 20120312
  Receipt Date: 20120306
  Transmission Date: 20120608
  Serious: Yes (Hospitalization, Other)
  Sender: FDA-Public Use
  Company Number: DSU-2012-01841

PATIENT
  Age: 67 Year
  Sex: Male
  Weight: 64.4108 kg

DRUGS (3)
  1. AZOR [Suspect]
     Indication: HYPERTENSION
     Dosage: 10/40MG (QD),PER ORAL ; 10/40MG (QD),PER ORAL ; 10/40MG (QD),PER ORAL
     Route: 048
     Dates: start: 20100101, end: 20120220
  2. AZOR [Suspect]
     Indication: HYPERTENSION
     Dosage: 10/40MG (QD),PER ORAL ; 10/40MG (QD),PER ORAL ; 10/40MG (QD),PER ORAL
     Route: 048
     Dates: start: 20120228, end: 20120228
  3. AZOR [Suspect]
     Indication: HYPERTENSION
     Dosage: 10/40MG (QD),PER ORAL ; 10/40MG (QD),PER ORAL ; 10/40MG (QD),PER ORAL
     Route: 048
     Dates: start: 20120305, end: 20120305

REACTIONS (6)
  - WEIGHT DECREASED [None]
  - MALAISE [None]
  - DIARRHOEA [None]
  - NAUSEA [None]
  - DEHYDRATION [None]
  - PRODUCT QUALITY ISSUE [None]
